FAERS Safety Report 9838896 (Version 2)
Quarter: 2014Q1

REPORT INFORMATION
  Report Type: Spontaneous
  Country: IT (occurrence: IT)
  Receive Date: 20140123
  Receipt Date: 20140207
  Transmission Date: 20141002
  Serious: Yes (Hospitalization)
  Sender: FDA-Public Use
  Company Number: IT-ACTAVIS-2014-00539

PATIENT
  Age: 53 Year
  Sex: Female
  Weight: 45 kg

DRUGS (5)
  1. PARACETAMOL (UNKNOWN) [Suspect]
     Indication: SUICIDE ATTEMPT
     Dosage: 16000 MG, TOTAL
     Route: 048
     Dates: start: 20130928, end: 20130928
  2. CARDIRENE [Suspect]
     Indication: SUICIDE ATTEMPT
     Dosage: 5440 MG, TOTAL
     Route: 048
     Dates: start: 20130928, end: 20130928
  3. VALDORM /00246102/ [Suspect]
     Indication: SUICIDE ATTEMPT
     Dosage: 450 MG, TOTAL
     Route: 048
     Dates: start: 20130928, end: 20130928
  4. LYRICA [Suspect]
     Indication: SUICIDE ATTEMPT
     Dosage: 1050 MG, TOTAL
     Route: 048
     Dates: start: 20130928, end: 20130928
  5. DELORAZEPAM [Suspect]
     Indication: SUICIDE ATTEMPT
     Dosage: 40 MG, TOTAL
     Route: 048
     Dates: start: 20130928, end: 20130928

REACTIONS (4)
  - Suicide attempt [Unknown]
  - Drug abuse [Unknown]
  - Speech disorder [Unknown]
  - Bradyphrenia [Unknown]
